FAERS Safety Report 18797998 (Version 1)
Quarter: 2021Q1

REPORT INFORMATION
  Report Type: Spontaneous
  Country: IR (occurrence: IR)
  Receive Date: 20210128
  Receipt Date: 20210128
  Transmission Date: 20210419
  Serious: Yes (Life-Threatening, Hospitalization, Other)
  Sender: FDA-Public Use
  Company Number: NVSC2021IR015018

PATIENT
  Age: 30 Year
  Sex: Female

DRUGS (1)
  1. METHOTREXATE. [Suspect]
     Active Substance: METHOTREXATE
     Indication: ECTOPIC PREGNANCY
     Dosage: 80 MG, QD (50MG/M2)
     Route: 030

REACTIONS (18)
  - Mouth ulceration [Recovered/Resolved]
  - Pancytopenia [Recovered/Resolved]
  - Skin hyperpigmentation [Recovered/Resolved]
  - Skin lesion [Recovered/Resolved]
  - Septic shock [Recovered/Resolved]
  - Alopecia [Recovered/Resolved]
  - Dehydration [Recovered/Resolved]
  - Haemorrhage [Recovered/Resolved]
  - Neurotoxicity [Recovered/Resolved]
  - Hypersensitivity [Recovered/Resolved]
  - Vomiting [Recovered/Resolved]
  - Blood creatinine increased [Recovered/Resolved]
  - Loss of consciousness [Recovered/Resolved]
  - Rash pustular [Recovered/Resolved]
  - Pyrexia [Recovered/Resolved]
  - Nausea [Recovered/Resolved]
  - Toxicity to various agents [Recovered/Resolved]
  - Contraindicated product administered [Unknown]
